FAERS Safety Report 5335934-7 (Version None)
Quarter: 2007Q2

REPORT INFORMATION
  Report Type: 
  Country: None (occurrence: None)
  Receive Date: 20070301
  Receipt Date: 20061020
  Transmission Date: 20071010
  Serious: Yes (Other)
  Sender: FDA-Public Use
  Company Number: US200610003962

PATIENT
  Age: 22 Year
  Sex: Female

DRUGS (1)
  1. SYMBYAX [Suspect]
     Indication: BIPOLAR I DISORDER
     Dosage: D/F
     Dates: start: 20061001, end: 20061019

REACTIONS (2)
  - CONVULSION [None]
  - FAECAL INCONTINENCE [None]
